FAERS Safety Report 21264201 (Version 3)
Quarter: 2022Q3

REPORT INFORMATION
  Report Type: Spontaneous
  Country: US (occurrence: US)
  Receive Date: 20220829
  Receipt Date: 20220926
  Transmission Date: 20221027
  Serious: Yes (Other)
  Sender: FDA-Public Use
  Company Number: US-JNJFOC-20220846407

PATIENT
  Age: 5 Decade
  Sex: Female

DRUGS (3)
  1. NEUTROGENA AGE SHIELD FACE SPF 110 [Suspect]
     Active Substance: AVOBENZONE\HOMOSALATE\OCTISALATE\OCTOCRYLENE\OXYBENZONE
     Indication: Prophylaxis against solar radiation
     Dosage: A DIME SIZE PORTION OF CREAM, USED THIS PRODUCT FOR MANY YEARS
     Route: 061
     Dates: start: 201601
  2. NEUTROGENA AGE SHIELD FACE OIL FREE SUNSCRN BR?D SPECT SPF 70 (AV\HOM\ [Suspect]
     Active Substance: AVOBENZONE\HOMOSALATE\OCTISALATE\OCTOCRYLENE
     Indication: Product used for unknown indication
     Route: 061
  3. NEUTROGENA ULTRA SHEER DRY TOUCH SUNSCREEN BROAD SPECTRUM SPF 70 [Suspect]
     Active Substance: AVOBENZONE\HOMOSALATE\OCTISALATE\OCTOCRYLENE
     Indication: Product used for unknown indication
     Route: 061

REACTIONS (1)
  - Precancerous skin lesion [Recovered/Resolved]
